FAERS Safety Report 5839752-2 (Version None)
Quarter: 2008Q3

REPORT INFORMATION
  Report Type: 
  Country: None (occurrence: None)
  Receive Date: 20080811
  Receipt Date: 20080806
  Transmission Date: 20090109
  Serious: Yes (Other)
  Sender: FDA-Public Use
  Company Number: GB-BRISTOL-MYERS SQUIBB COMPANY-14292759

PATIENT
  Age: 61 Year
  Sex: Male

DRUGS (2)
  1. VIDEX [Suspect]
     Dates: start: 20000101, end: 20070101
  2. SUSTIVA [Suspect]
     Dates: start: 20000101, end: 20070101

REACTIONS (1)
  - CARDIOMYOPATHY [None]
